FAERS Safety Report 5726706-X (Version None)
Quarter: 2008Q2

REPORT INFORMATION
  Report Type: 
  Country: None (occurrence: None)
  Receive Date: 20080502
  Receipt Date: 20080421
  Transmission Date: 20081010
  Serious: Yes (Death)
  Sender: FDA-Public Use
  Company Number: DE-SANOFI-SYNTHELABO-A01200804527

PATIENT
  Age: 65 Year
  Sex: Female

DRUGS (5)
  1. ENALAPRIL [Suspect]
     Indication: DRUG USE FOR UNKNOWN INDICATION
     Dosage: UNK
     Route: 065
  2. ACETYLSALICYLIC ACID SRT [Concomitant]
     Indication: DRUG USE FOR UNKNOWN INDICATION
     Dosage: UNK
     Route: 065
  3. ISCOVER, PLAVIX [Suspect]
     Indication: CORONARY ANGIOPLASTY
     Route: 048
  4. ISCOVER, PLAVIX [Suspect]
     Indication: STENT PLACEMENT
     Route: 048
  5. BISOPROLOL FUMARATE [Suspect]
     Indication: DRUG USE FOR UNKNOWN INDICATION
     Dosage: UNK
     Route: 065

REACTIONS (1)
  - ACUTE HEPATIC FAILURE [None]
